FAERS Safety Report 7046296-1 (Version None)
Quarter: 2010Q4

REPORT INFORMATION
  Report Type: 
  Country: None (occurrence: None)
  Receive Date: 20101014
  Receipt Date: 20101004
  Transmission Date: 20110411
  Serious: Yes (Hospitalization)
  Sender: FDA-Public Use
  Company Number: B0677539A

PATIENT
  Sex: Male

DRUGS (10)
  1. ARIXTRA [Suspect]
     Indication: THROMBOSIS PROPHYLAXIS
     Dosage: 7.5MG PER DAY
     Route: 058
     Dates: start: 20100801, end: 20100909
  2. KARDEGIC [Suspect]
     Indication: ATRIAL FIBRILLATION
     Dosage: 160MG PER DAY
     Route: 048
  3. BRICANYL [Concomitant]
     Route: 065
  4. HEMIGOXINE [Concomitant]
     Route: 065
  5. LOXEN [Concomitant]
     Route: 065
  6. FLUDEX [Concomitant]
     Route: 065
  7. SYMBICORT [Concomitant]
     Route: 065
  8. EUPANTOL [Concomitant]
     Route: 065
  9. RIVOTRIL [Concomitant]
     Route: 065
  10. FORLAX [Concomitant]
     Route: 065

REACTIONS (4)
  - CEREBRAL HAEMATOMA [None]
  - CONDITION AGGRAVATED [None]
  - OVERDOSE [None]
  - SENSORIMOTOR DISORDER [None]
